FAERS Safety Report 4626277-5 (Version None)
Quarter: 2005Q2

REPORT INFORMATION
  Report Type: 
  Country: None (occurrence: None)
  Receive Date: 20050404
  Receipt Date: 20050311
  Transmission Date: 20051028
  Serious: Yes (Hospitalization)
  Sender: FDA-Public Use
  Company Number: JP-ROCHE-398938

PATIENT
  Age: 92 Year
  Sex: Male

DRUGS (15)
  1. TAMIFLU [Suspect]
     Indication: INFLUENZA
     Route: 048
     Dates: start: 20050308, end: 20050308
  2. TAMIFLU [Suspect]
     Route: 048
     Dates: start: 20050307, end: 20050307
  3. SOLANTAL [Suspect]
     Indication: DRUG USE FOR UNKNOWN INDICATION
     Route: 048
     Dates: start: 20050307, end: 20050308
  4. TROXIPIDE [Suspect]
     Indication: DRUG USE FOR UNKNOWN INDICATION
     Dosage: DRUG NAME REPORTED AS ^TROXSIN^
     Route: 048
     Dates: start: 20050307, end: 20050308
  5. UNSPECIFIED DRUG [Concomitant]
     Indication: PEPTIC ULCER
     Dosage: DRUG REPORTED AS ^AGENTS FOR PEPTIC ULCER^
     Route: 065
  6. ADALAT [Concomitant]
     Indication: DRUG USE FOR UNKNOWN INDICATION
     Route: 048
     Dates: start: 19950615
  7. ZYLORIC [Concomitant]
     Indication: DRUG USE FOR UNKNOWN INDICATION
     Route: 048
     Dates: start: 19950615, end: 20050308
  8. ASPIRIN [Concomitant]
     Indication: DRUG USE FOR UNKNOWN INDICATION
     Route: 048
     Dates: start: 19950615
  9. LASIX [Concomitant]
     Indication: DRUG USE FOR UNKNOWN INDICATION
     Route: 048
     Dates: start: 19950615
  10. SIGMART [Concomitant]
     Indication: DRUG USE FOR UNKNOWN INDICATION
     Route: 048
     Dates: start: 19950615
  11. ITOROL [Concomitant]
     Indication: DRUG USE FOR UNKNOWN INDICATION
     Route: 048
     Dates: start: 19950615, end: 20050308
  12. SELOKEN [Concomitant]
     Indication: DRUG USE FOR UNKNOWN INDICATION
     Route: 048
     Dates: start: 19950615, end: 20050308
  13. FAMOTIDINE [Concomitant]
     Indication: DRUG USE FOR UNKNOWN INDICATION
     Route: 048
     Dates: start: 19950615, end: 20050308
  14. NITRODERM [Concomitant]
     Indication: DRUG USE FOR UNKNOWN INDICATION
     Dosage: DOSAGE FORM REPORTED AS ^TAPE^
     Route: 061
     Dates: start: 19950615
  15. LEBENIN [Concomitant]
     Indication: DRUG USE FOR UNKNOWN INDICATION
     Route: 048
     Dates: start: 19950615

REACTIONS (9)
  - ANAEMIA [None]
  - DEHYDRATION [None]
  - DISEASE PROGRESSION [None]
  - EATING DISORDER [None]
  - ENCEPHALOPATHY [None]
  - MEDICATION ERROR [None]
  - MYOCLONUS [None]
  - RENAL FAILURE [None]
  - TREMOR [None]
